FAERS Safety Report 17315919 (Version 2)
Quarter: 2020Q2

REPORT INFORMATION
  Report Type: Spontaneous
  Country: US (occurrence: US)
  Receive Date: 20200124
  Receipt Date: 20200609
  Transmission Date: 20200713
  Serious: No
  Sender: FDA-Public Use
  Company Number: US-PFIZER INC-2020035191

PATIENT
  Age: 74 Year
  Sex: Female
  Weight: 69.39 kg

DRUGS (6)
  1. LYRICA [Suspect]
     Active Substance: PREGABALIN
     Indication: NEURALGIA
     Dosage: 100 MG (3 TIMES)
     Dates: start: 2015
  2. LYRICA [Suspect]
     Active Substance: PREGABALIN
     Indication: HYPOAESTHESIA
  3. LYRICA [Suspect]
     Active Substance: PREGABALIN
     Indication: BURNING SENSATION
  4. LYRICA [Suspect]
     Active Substance: PREGABALIN
     Indication: PAIN
  5. NORTRIPTYLINE [Concomitant]
     Active Substance: NORTRIPTYLINE
     Indication: MUSCLE SPASMS
     Dosage: 25 MG, 1X/DAY (TAKE AT BEDTIME)
  6. LYRICA [Suspect]
     Active Substance: PREGABALIN
     Indication: SPINAL STENOSIS

REACTIONS (1)
  - Therapeutic product effect incomplete [Unknown]

NARRATIVE: CASE EVENT DATE: 2015
